FAERS Safety Report 8453694-8 (Version None)
Quarter: 2012Q2

REPORT INFORMATION
  Report Type: 
  Country: None (occurrence: None)
  Receive Date: 20120620
  Receipt Date: 20120615
  Transmission Date: 20120825
  Serious: Yes (Other)
  Sender: FDA-Public Use
  Company Number: JP-PFIZER INC-2012122840

PATIENT
  Age: 53 Year
  Sex: Female

DRUGS (1)
  1. LYRICA [Suspect]
     Indication: TENSION HEADACHE
     Dosage: 75 MG, 1X/DAY
     Route: 048
     Dates: start: 20120424, end: 20120426

REACTIONS (2)
  - CONJUNCTIVAL HAEMORRHAGE [None]
  - DIARRHOEA [None]
